FAERS Safety Report 4278147-2 (Version None)
Quarter: 2004Q1

REPORT INFORMATION
  Report Type: 
  Country: None (occurrence: None)
  Receive Date: 20040121
  Receipt Date: 20040108
  Transmission Date: 20041129
  Serious: Yes (Hospitalization)
  Sender: FDA-Public Use
  Company Number: 204099

PATIENT
  Age: 38 Year
  Sex: Male

DRUGS (7)
  1. RITUXAN [Suspect]
     Indication: NON-HODGKIN'S LYMPHOMA
     Dosage: 675 MG, Q3W, INTRAVENOUS
     Route: 042
     Dates: start: 20020306, end: 20020511
  2. CARBOPLATIN [Suspect]
     Indication: NON-HODGKIN'S LYMPHOMA
     Dosage: 250 MG/M2
     Dates: start: 20020308, end: 20020508
  3. IRINOTECAN (IRINOTECAN HYDROCHLORIDE) [Suspect]
     Indication: NON-HODGKIN'S LYMPHOMA
     Dosage: 25 MG/M2,
     Dates: start: 20020308, end: 20020508
  4. ETOPOSIDE [Suspect]
     Indication: NON-HODGKIN'S LYMPHOMA
     Dosage: 100 MG/M2
     Dates: start: 20020308, end: 20020508
  5. DEXAMETHASONE [Suspect]
     Indication: NON-HODGKIN'S LYMPHOMA
     Dosage: 0.04 MG
     Dates: start: 20020308, end: 20020508
  6. LOXOPROFEN SODIUM (LOXOPROFEN SODIUM) [Concomitant]
  7. DIPHENHYDRAMINE HCL [Concomitant]

REACTIONS (1)
  - NEUTROPHIL COUNT DECREASED [None]
